FAERS Safety Report 10164860 (Version 1)
Quarter: 2014Q2

REPORT INFORMATION
  Report Type: Spontaneous
  Country: US (occurrence: US)
  Receive Date: 20140510
  Receipt Date: 20140510
  Transmission Date: 20141212
  Serious: No
  Sender: FDA-Public Use
  Company Number: US-BRISTOL-MYERS SQUIBB COMPANY-20543773

PATIENT
  Age: 66 Year
  Sex: Male
  Weight: 115.64 kg

DRUGS (9)
  1. BYETTA PEN DISPOSABLE [Suspect]
     Indication: TYPE 2 DIABETES MELLITUS
     Route: 058
  2. METFORMIN HCL [Suspect]
  3. GLYBURIDE + METFORMIN HCL [Suspect]
  4. SIMVASTATIN [Concomitant]
  5. HYDROCHLOROTHIAZIDE [Concomitant]
  6. ASPIRIN [Concomitant]
  7. VITAMIN D [Concomitant]
  8. NITROGLYCERIN [Concomitant]
  9. VITAMIN C [Concomitant]

REACTIONS (2)
  - Product quality issue [Unknown]
  - Blood glucose increased [Unknown]
